FAERS Safety Report 11129196 (Version 1)
Quarter: 2015Q2

REPORT INFORMATION
  Report Type: Spontaneous
  Country: JP (occurrence: JP)
  Receive Date: 20150521
  Receipt Date: 20150521
  Transmission Date: 20150821
  Serious: Yes (Other)
  Sender: FDA-Public Use
  Company Number: JP-NAPPMUNDI-GBR-2015-0027896

PATIENT
  Sex: Male

DRUGS (11)
  1. FENTOS [Concomitant]
     Active Substance: FENTANYL
     Dosage: 20 MG, DAILY
     Route: 065
  2. FENTOS [Concomitant]
     Active Substance: FENTANYL
     Dosage: 8 MG, DAILY
     Route: 065
     Dates: start: 20150410
  3. ABSTRAL [Concomitant]
     Active Substance: FENTANYL CITRATE
     Indication: CANCER PAIN
     Route: 065
  4. OXYCONTIN [Suspect]
     Active Substance: OXYCODONE HYDROCHLORIDE
     Dosage: 540 MG, UNK
     Route: 048
     Dates: start: 20150511, end: 20150512
  5. OXYCONTIN [Suspect]
     Active Substance: OXYCODONE HYDROCHLORIDE
     Dosage: 400 MG, UNK
     Route: 048
     Dates: start: 20150421
  6. OXYCONTIN [Suspect]
     Active Substance: OXYCODONE HYDROCHLORIDE
     Dosage: 240 MG, UNK
     Route: 048
     Dates: start: 20150410
  7. FENTOS [Concomitant]
     Active Substance: FENTANYL
     Indication: CANCER PAIN
     Dosage: 4 MG, DAILY
     Route: 065
     Dates: start: 20150414
  8. OXYCONTIN [Suspect]
     Active Substance: OXYCODONE HYDROCHLORIDE
     Dosage: 160 MG, UNK
     Route: 048
     Dates: start: 20150406
  9. FENTOS [Concomitant]
     Active Substance: FENTANYL
     Dosage: 12 MG, DAILY
     Route: 065
     Dates: start: 20150406
  10. OXYCONTIN [Suspect]
     Active Substance: OXYCODONE HYDROCHLORIDE
     Indication: CANCER PAIN
     Dosage: 500 MG, UNK
     Route: 048
     Dates: start: 20150512
  11. OXYCONTIN [Suspect]
     Active Substance: OXYCODONE HYDROCHLORIDE
     Dosage: 360 MG, UNK
     Route: 048
     Dates: start: 20150414

REACTIONS (1)
  - Delirium [Unknown]

NARRATIVE: CASE EVENT DATE: 20150511
